FAERS Safety Report 20269196 (Version 1)
Quarter: 2022Q1

REPORT INFORMATION
  Report Type: Spontaneous
  Country: GB (occurrence: GB)
  Receive Date: 20220101
  Receipt Date: 20220101
  Transmission Date: 20220423
  Serious: Yes (Other)
  Sender: FDA-Public Use
  Company Number: GB-MHRA-TPP28739114C5321269YC1639741944228

PATIENT
  Age: 26 Year
  Sex: Male
  Weight: 61 kg

DRUGS (4)
  1. NAPROXEN [Suspect]
     Active Substance: NAPROXEN
     Indication: Back pain
     Dosage: 500 MILLIGRAM, AS NECESSARY (TAKE ONE UP TO TWICE A DAY)
     Route: 065
     Dates: start: 20211014, end: 20211111
  2. AMITRIPTYLINE HYDROCHLORIDE [Concomitant]
     Active Substance: AMITRIPTYLINE HYDROCHLORIDE
     Indication: Migraine prophylaxis
     Dosage: 3 DOSAGE FORM, ONCE A DAY (AT NIGHT)
     Route: 065
     Dates: start: 20210630
  3. CODEINE PHOSPHATE [Concomitant]
     Active Substance: CODEINE PHOSPHATE
     Indication: Pain
     Dosage: 1 DOSAGE FORM, AS NECESSARY (4 TIMES/DAY (CAN BE TAKEN WITH PARACETAMOL))
     Route: 065
     Dates: start: 20211011, end: 20211025
  4. OMEPRAZOLE [Concomitant]
     Active Substance: OMEPRAZOLE
     Indication: Product used for unknown indication
     Dosage: 3 DOSAGE FORM, ONCE A DAY (TAKE TWO CAPSULES AT MIDDAY AND ONE CAPSULE AT ...)
     Route: 065
     Dates: start: 20200520, end: 20211020

REACTIONS (4)
  - Rash [Unknown]
  - Melaena [Unknown]
  - Haematuria [Unknown]
  - Abdominal pain [Unknown]
